FAERS Safety Report 4944393-5 (Version None)
Quarter: 2006Q1

REPORT INFORMATION
  Report Type: 
  Country: None (occurrence: None)
  Receive Date: 20060315
  Receipt Date: 20051005
  Transmission Date: 20060701
  Serious: Yes (Death, Hospitalization)
  Sender: FDA-Public Use
  Company Number: US-MERCK-0510USA04593

PATIENT
  Age: 83 Year
  Sex: Female
  Weight: 68 kg

DRUGS (1)
  1. VIOXX [Suspect]
     Indication: ARTHRITIS
     Route: 048
     Dates: start: 19990101, end: 20010101

REACTIONS (18)
  - ANGINA PECTORIS [None]
  - BACK PAIN [None]
  - BLOOD GLUCOSE DECREASED [None]
  - BRADYCARDIA [None]
  - BRONCHITIS ACUTE [None]
  - CARDIAC FAILURE CONGESTIVE [None]
  - CAROTID ARTERY OCCLUSION [None]
  - DEPRESSION [None]
  - DIABETIC ULCER [None]
  - EFFUSION [None]
  - HAEMATURIA [None]
  - MYOCARDIAL ISCHAEMIA [None]
  - OSTEOMYELITIS [None]
  - PLEURAL EFFUSION [None]
  - STOMACH DISCOMFORT [None]
  - TACHYCARDIA [None]
  - THERAPEUTIC AGENT TOXICITY [None]
  - WEIGHT DECREASED [None]
